FAERS Safety Report 9114849 (Version 1)
Quarter: 2013Q1

REPORT INFORMATION
  Report Type: Spontaneous
  Country: US (occurrence: None)
  Receive Date: 20130225
  Receipt Date: 20130225
  Transmission Date: 20140127
  Serious: Yes (Hospitalization)
  Sender: FDA-Public Use
  Company Number: None

PATIENT
  Age: 76 Year
  Sex: Female
  Weight: 63.5 kg

DRUGS (1)
  1. METHYLPREDNISOLONE ACETATE [Suspect]
     Indication: VULVOVAGINAL PAIN
     Dosage: 80MG PRN EPIDURAL
     Route: 008
     Dates: start: 20120717, end: 20120926

REACTIONS (7)
  - Dizziness [None]
  - Nausea [None]
  - Headache [None]
  - Back pain [None]
  - Diarrhoea [None]
  - Injection site pain [None]
  - Product quality issue [None]
